FAERS Safety Report 6440160-4 (Version None)
Quarter: 2009Q4

REPORT INFORMATION
  Report Type: 
  Country: None (occurrence: None)
  Receive Date: 20091113
  Receipt Date: 20090430
  Transmission Date: 20100525
  Serious: No
  Sender: FDA-Public Use
  Company Number: A0783049A

PATIENT

DRUGS (2)
  1. COREG [Suspect]
     Route: 048
  2. PLAVIX [Suspect]
     Route: 048

REACTIONS (1)
  - RASH [None]
